FAERS Safety Report 24130438 (Version 1)
Quarter: 2024Q3

REPORT INFORMATION
  Report Type: Spontaneous
  Country: CN (occurrence: CN)
  Receive Date: 20240724
  Receipt Date: 20240724
  Transmission Date: 20241017
  Serious: Yes (Death, Other)
  Sender: ALKEM
  Company Number: CN-ALKEM LABORATORIES LIMITED-CN-ALKEM-2024-15753

PATIENT
  Age: 8 Month

DRUGS (4)
  1. AZATHIOPRINE [Suspect]
     Active Substance: AZATHIOPRINE
     Indication: Hepatitis
     Dosage: UNK
     Route: 065
  2. AZATHIOPRINE [Suspect]
     Active Substance: AZATHIOPRINE
     Indication: Autoimmune haemolytic anaemia
  3. PREDNISONE [Suspect]
     Active Substance: PREDNISONE
     Indication: Hepatitis
     Dosage: UNK
     Route: 065
  4. PREDNISONE [Suspect]
     Active Substance: PREDNISONE
     Indication: Autoimmune haemolytic anaemia

REACTIONS (4)
  - Seizure [Fatal]
  - Jaundice [Fatal]
  - Pyelonephritis [Fatal]
  - Pneumonia [Fatal]
